FAERS Safety Report 10161633 (Version 2)
Quarter: 2014Q3

REPORT INFORMATION
  Report Type: Report from Study
  Country: CA (occurrence: CA)
  Receive Date: 20140509
  Receipt Date: 20140723
  Transmission Date: 20150326
  Serious: Yes (Other)
  Sender: FDA-Public Use
  Company Number: CA-BRISTOL-MYERS SQUIBB COMPANY-20704276

PATIENT
  Age: 66 Year
  Sex: Female

DRUGS (13)
  1. CALCIUM [Concomitant]
     Active Substance: CALCIUM
  2. PLAQUENIL [Concomitant]
     Active Substance: HYDROXYCHLOROQUINE SULFATE
  3. METHOTREXATE [Concomitant]
     Active Substance: METHOTREXATE
  4. TOVIAZ [Concomitant]
     Active Substance: FESOTERODINE FUMARATE
  5. ACTONEL [Concomitant]
     Active Substance: RISEDRONATE SODIUM
  6. VENLAFAXINE HCL [Concomitant]
     Active Substance: VENLAFAXINE HYDROCHLORIDE
  7. ORENCIA [Suspect]
     Active Substance: ABATACEPT
     Indication: RHEUMATOID ARTHRITIS
     Dosage: 1DF=500 UNITS NOS.?ONGOING SWITCH TO SUBCUTANEOUS ABATACEPT FROM 30-APR-2014
     Route: 042
     Dates: start: 20130129
  8. SEROQUEL [Concomitant]
     Active Substance: QUETIAPINE FUMARATE
  9. ADALAT CC [Concomitant]
     Active Substance: NIFEDIPINE
  10. VITAMIN D [Concomitant]
     Active Substance: CHOLECALCIFEROL
  11. FISH OIL [Concomitant]
     Active Substance: FISH OIL
  12. VITAMIN C [Concomitant]
     Active Substance: ASCORBIC ACID
  13. OXYTETRACYCLINE [Concomitant]
     Active Substance: OXYTETRACYCLINE

REACTIONS (3)
  - Spinal compression fracture [Unknown]
  - Migraine [Unknown]
  - Arthritis [Unknown]

NARRATIVE: CASE EVENT DATE: 201404
